FAERS Safety Report 8272362-9 (Version None)
Quarter: 2012Q1

REPORT INFORMATION
  Report Type: 
  Country: None (occurrence: None)
  Receive Date: 20120314
  Receipt Date: 20100811
  Transmission Date: 20120608
  Serious: No
  Sender: FDA-Public Use
  Company Number: PHHY2010US53380

PATIENT
  Age: 55 Year
  Sex: Male

DRUGS (2)
  1. LITHIUM CARBONATE [Concomitant]
  2. FANAPT [Suspect]
     Indication: SCHIZOPHRENIA
     Dosage: 8 MG, BID, ORAL
     Route: 048
     Dates: start: 20100720, end: 20100820

REACTIONS (1)
  - SWELLING [None]
